FAERS Safety Report 15548642 (Version 2)
Quarter: 2018Q4

REPORT INFORMATION
  Report Type: Spontaneous
  Country: US (occurrence: US)
  Receive Date: 20181025
  Receipt Date: 20181101
  Transmission Date: 20190205
  Serious: No
  Sender: FDA-Public Use
  Company Number: US-UNITED THERAPEUTICS-UNT-2018-017354

PATIENT
  Age: 45 Year
  Sex: Female
  Weight: 98.41 kg

DRUGS (1)
  1. REMODULIN [Suspect]
     Active Substance: TREPROSTINIL
     Indication: PULMONARY ARTERIAL HYPERTENSION
     Dosage: 0.007 ?G/KG, CONTINUING
     Route: 058
     Dates: start: 20181019

REACTIONS (13)
  - Arthralgia [Unknown]
  - Malaise [Unknown]
  - Vomiting [Unknown]
  - Tremor [Unknown]
  - Headache [Unknown]
  - Pain in jaw [Unknown]
  - Heart rate increased [Unknown]
  - Nausea [Unknown]
  - Pain [Unknown]
  - Pain in extremity [Unknown]
  - Flushing [Unknown]
  - Blood pressure increased [Unknown]
  - Neck pain [Unknown]

NARRATIVE: CASE EVENT DATE: 201810
